FAERS Safety Report 17094230 (Version 1)
Quarter: 2019Q4

REPORT INFORMATION
  Report Type: Report from Study
  Country: MX (occurrence: MX)
  Receive Date: 20191129
  Receipt Date: 20191129
  Transmission Date: 20200122
  Serious: Yes (Hospitalization, Other)
  Sender: FDA-Public Use
  Company Number: NVSC2019MX009870

PATIENT
  Age: 77 Year
  Sex: Female
  Weight: 58 kg

DRUGS (2)
  1. LIBERTRIM [Concomitant]
     Active Substance: TRIMEBUTINE
     Indication: COLITIS
     Dosage: 1 DF, QD
     Route: 048
  2. CO-DIOVAN [Suspect]
     Active Substance: HYDROCHLOROTHIAZIDE\VALSARTAN
     Indication: BLOOD PRESSURE INCREASED
     Dosage: 1 DF, QD (HYDROCHLOROTHIAZIDE 25 MG, VALSARTAN 160 MG)
     Route: 048

REACTIONS (4)
  - Vein disorder [Unknown]
  - Inflammation [Recovered/Resolved]
  - Thrombosis [Recovered/Resolved]
  - Varicose vein [Recovered/Resolved]

NARRATIVE: CASE EVENT DATE: 201904
